FAERS Safety Report 9053585 (Version 1)
Quarter: 2013Q1

REPORT INFORMATION
  Report Type: Spontaneous
  Country: BR (occurrence: BR)
  Receive Date: 20130208
  Receipt Date: 20130208
  Transmission Date: 20140127
  Serious: Yes (Hospitalization)
  Sender: FDA-Public Use
  Company Number: BR-JNJFOC-20130115378

PATIENT
  Sex: Male
  Weight: 70 kg

DRUGS (15)
  1. REMICADE [Suspect]
     Indication: COLITIS
     Route: 042
     Dates: start: 201210
  2. REMICADE [Suspect]
     Indication: COLITIS
     Route: 042
     Dates: start: 201212
  3. REMICADE [Suspect]
     Indication: CROHN^S DISEASE
     Route: 042
     Dates: start: 201210
  4. REMICADE [Suspect]
     Indication: CROHN^S DISEASE
     Route: 042
     Dates: start: 201212
  5. OMEPRAZOLE [Concomitant]
     Indication: GASTROINTESTINAL DISORDER THERAPY
     Route: 065
  6. DUSPATALIN [Concomitant]
     Indication: FLATULENCE
     Route: 065
  7. DUSPATALIN [Concomitant]
     Indication: MALAISE
     Route: 065
  8. DUSPATALIN [Concomitant]
     Indication: NAUSEA
     Route: 065
  9. DUSPATALIN [Concomitant]
     Indication: ABDOMINAL DISCOMFORT
     Route: 065
  10. LUFTAL [Concomitant]
     Indication: FLATULENCE
     Route: 065
  11. LUFTAL [Concomitant]
     Indication: MALAISE
     Route: 065
  12. LUFTAL [Concomitant]
     Indication: NAUSEA
     Route: 065
  13. LUFTAL [Concomitant]
     Indication: ABDOMINAL DISCOMFORT
     Route: 065
  14. VITAMIN D [Concomitant]
     Route: 065
  15. IMURAN [Concomitant]
     Route: 065

REACTIONS (4)
  - Condition aggravated [Recovered/Resolved]
  - Haemorrhage [Recovered/Resolved]
  - Diarrhoea [Recovered/Resolved]
  - Abdominal pain [Recovered/Resolved]
